FAERS Safety Report 11638185 (Version 1)
Quarter: 2015Q4

REPORT INFORMATION
  Report Type: Spontaneous
  Country: US (occurrence: US)
  Receive Date: 20151016
  Receipt Date: 20151016
  Transmission Date: 20160304
  Serious: No
  Sender: FDA-Public Use
  Company Number: US-FRESENIUS KABI-FK201500917

PATIENT
  Sex: Female
  Weight: 96 kg

DRUGS (2)
  1. NORMAL SALINE [Concomitant]
     Active Substance: SODIUM CHLORIDE
     Indication: SUPPORTIVE CARE
     Route: 042
  2. MAGNESIUM SULFATE INJECTION, USP [Suspect]
     Active Substance: MAGNESIUM SULFATE
     Indication: SUPPORTIVE CARE
     Route: 042

REACTIONS (1)
  - Urticaria [Recovered/Resolved]
